FAERS Safety Report 8165190-6 (Version None)
Quarter: 2012Q1

REPORT INFORMATION
  Report Type: 
  Country: None (occurrence: None)
  Receive Date: 20120227
  Receipt Date: 20120222
  Transmission Date: 20120608
  Serious: No
  Sender: FDA-Public Use
  Company Number: US-PFIZER INC-2012047377

PATIENT
  Sex: Male
  Weight: 83.9 kg

DRUGS (3)
  1. ABILIFY [Concomitant]
     Indication: DEPRESSION
     Dosage: UNK
  2. NARDIL [Suspect]
     Indication: DEPRESSION
     Dosage: 15 MG, 2X/DAY
     Route: 048
     Dates: start: 20120208
  3. WELLBUTRIN [Concomitant]
     Indication: DEPRESSION
     Dosage: 300 MG, 1X/DAY

REACTIONS (1)
  - NASOPHARYNGITIS [None]
